FAERS Safety Report 25375432 (Version 2)
Quarter: 2025Q2

REPORT INFORMATION
  Report Type: Spontaneous
  Country: US (occurrence: US)
  Receive Date: 20250529
  Receipt Date: 20250605
  Transmission Date: 20250716
  Serious: No
  Sender: GUERBET
  Company Number: US-GUERBET / LLC-US-20250098

PATIENT
  Age: 50 Year
  Sex: Female
  Weight: 85 kg

DRUGS (1)
  1. ELUCIREM [Suspect]
     Active Substance: GADOPICLENOL
     Indication: Magnetic resonance imaging abdominal
     Route: 042
     Dates: start: 20250513, end: 20250513

REACTIONS (3)
  - Rash erythematous [Recovered/Resolved]
  - Oropharyngeal discomfort [Recovered/Resolved]
  - Anxiety [Recovered/Resolved]

NARRATIVE: CASE EVENT DATE: 20250513
